FAERS Safety Report 4477287-2 (Version None)
Quarter: 2004Q4

REPORT INFORMATION
  Report Type: 
  Country: None (occurrence: None)
  Receive Date: 20041018
  Receipt Date: 20041012
  Transmission Date: 20050328
  Serious: Yes (Hospitalization, Disabling)
  Sender: FDA-Public Use
  Company Number: US-MERCK-0410USA01783

PATIENT
  Age: 69 Year
  Sex: Female

DRUGS (2)
  1. ACTOS [Concomitant]
     Route: 065
  2. VIOXX [Suspect]
     Indication: ARTHRITIS
     Route: 048
     Dates: end: 20040930

REACTIONS (1)
  - CEREBROVASCULAR ACCIDENT [None]
